FAERS Safety Report 6523337-9 (Version None)
Quarter: 2009Q4

REPORT INFORMATION
  Report Type: 
  Country: None (occurrence: None)
  Receive Date: 20091231
  Receipt Date: 20091230
  Transmission Date: 20100525
  Serious: Yes (Life-Threatening, Hospitalization)
  Sender: FDA-Public Use
  Company Number: US-JNJFOC-20091103065

PATIENT
  Sex: Female

DRUGS (7)
  1. LEVAQUIN [Suspect]
     Indication: INFECTION
     Route: 065
     Dates: start: 20091031, end: 20091031
  2. SIMVASTATIN [Concomitant]
     Route: 065
  3. GLUCOPHAGE [Concomitant]
     Indication: DIABETES MELLITUS
     Route: 065
  4. DIOVAN [Concomitant]
     Route: 065
  5. DILTI [Concomitant]
     Route: 065
  6. LASIX [Concomitant]
     Route: 065
  7. LEVOTHYROXINE SODIUM [Concomitant]
     Route: 065

REACTIONS (3)
  - BLOOD SODIUM DECREASED [None]
  - FLUID INTAKE REDUCED [None]
  - INCOHERENT [None]
